FAERS Safety Report 6029648-8 (Version None)
Quarter: 2009Q1

REPORT INFORMATION
  Report Type: 
  Country: None (occurrence: None)
  Receive Date: 20090107
  Receipt Date: 20070303
  Transmission Date: 20090719
  Serious: No
  Sender: FDA-Public Use
  Company Number: US-ABBOTT-08P-163-0440876-00

PATIENT
  Sex: Female
  Weight: 54.48 kg

DRUGS (5)
  1. VICODIN ES [Suspect]
     Indication: BONE PAIN
     Route: 048
     Dates: start: 20080225, end: 20080229
  2. VICODIN ES [Suspect]
     Indication: INTERVERTEBRAL DISC OPERATION
  3. VICODIN ES [Suspect]
  4. ALPRAZOLAM [Concomitant]
     Indication: ANXIETY
  5. NOSE SPRAY [Concomitant]
     Indication: HYPERSENSITIVITY

REACTIONS (2)
  - DRUG INEFFECTIVE [None]
  - PAIN [None]
